FAERS Safety Report 23503599 (Version 4)
Quarter: 2025Q2

REPORT INFORMATION
  Report Type: Spontaneous
  Country: FI (occurrence: FI)
  Receive Date: 20240208
  Receipt Date: 20250515
  Transmission Date: 20250717
  Serious: Yes (Other)
  Sender: AUROBINDO
  Company Number: FI-AstraZeneca-2024A015548

PATIENT
  Age: 65 Year
  Sex: Male

DRUGS (3)
  1. ROSUVASTATIN CALCIUM [Suspect]
     Active Substance: ROSUVASTATIN CALCIUM
     Indication: Dyslipidaemia
     Dosage: 20 MILLIGRAM, ONCE A DAY (8 YEARS)
     Route: 048
  2. PREDNISOLONE [Suspect]
     Active Substance: PREDNISOLONE
     Indication: Product used for unknown indication
     Dosage: 40 MILLIGRAM, ONCE A DAY
     Route: 065
  3. METHOTREXATE [Suspect]
     Active Substance: METHOTREXATE
     Indication: Product used for unknown indication
     Dosage: 15 MILLIGRAM, EVERY WEEK
     Route: 058

REACTIONS (4)
  - Immune-mediated myositis [Recovered/Resolved]
  - Drug level increased [Recovered/Resolved]
  - Drug-genetic interaction [Recovered/Resolved]
  - Therapeutic product effect incomplete [Unknown]
